FAERS Safety Report 7794440-0 (Version None)
Quarter: 2011Q4

REPORT INFORMATION
  Report Type: 
  Country: None (occurrence: None)
  Receive Date: 20111004
  Receipt Date: 20111004
  Transmission Date: 20120403
  Serious: Yes (Other)
  Sender: FDA-Public Use
  Company Number: None

PATIENT
  Age: 64 Year
  Sex: Male
  Weight: 79.378 kg

DRUGS (1)
  1. SINGULAIR [Suspect]

REACTIONS (3)
  - NASAL POLYPS [None]
  - AGEUSIA [None]
  - ANOSMIA [None]
